FAERS Safety Report 5565115-3 (Version None)
Quarter: 2007Q4

REPORT INFORMATION
  Report Type: 
  Country: None (occurrence: None)
  Receive Date: 20071213
  Receipt Date: 20071213
  Transmission Date: 20080405
  Serious: Yes (Death, Life-Threatening)
  Sender: FDA-Public Use
  Company Number: None

PATIENT
  Age: 49 Year
  Sex: Male
  Weight: 122.4712 kg

DRUGS (2)
  1. SEROQUEL [Suspect]
     Dosage: 1 DAILY PO
     Route: 048
  2. ATIVAN [Suspect]
     Indication: HALLUCINATION, AUDITORY
     Dosage: 3 DAILY PO
     Route: 048

REACTIONS (5)
  - AGITATION [None]
  - HOMICIDE [None]
  - INSOMNIA [None]
  - PHARMACEUTICAL PRODUCT COMPLAINT [None]
  - WEIGHT INCREASED [None]
